FAERS Safety Report 16196302 (Version 2)
Quarter: 2019Q2

REPORT INFORMATION
  Report Type: Spontaneous
  Country: CA (occurrence: CA)
  Receive Date: 20190415
  Receipt Date: 20190627
  Transmission Date: 20190711
  Serious: Yes (Congenital Anomaly, Other)
  Sender: FDA-Public Use
  Company Number: CA-APOTEX-2019AP012010

PATIENT
  Weight: 3 kg

DRUGS (1)
  1. PAXIL [Suspect]
     Active Substance: PAROXETINE HYDROCHLORIDE
     Indication: DEPRESSION
     Dosage: UNK
     Route: 064

REACTIONS (16)
  - Pierre Robin syndrome [Unknown]
  - Oropharyngeal plaque [Unknown]
  - Torticollis [Unknown]
  - Joint dislocation [Unknown]
  - Auditory disorder [Unknown]
  - Dental alveolar anomaly [Unknown]
  - Palatal disorder [Unknown]
  - Foetal exposure during pregnancy [Unknown]
  - Micrognathia [Unknown]
  - Velopharyngeal incompetence [Unknown]
  - Cleft lip [Unknown]
  - Cleft palate [Unknown]
  - Dysarthria [Unknown]
  - Gingivitis [Unknown]
  - Otitis media [Unknown]
  - Speech sound disorder [Unknown]

NARRATIVE: CASE EVENT DATE: 20060728
